FAERS Safety Report 21593448 (Version 3)
Quarter: 2022Q4

REPORT INFORMATION
  Report Type: Report from Study
  Country: US (occurrence: US)
  Receive Date: 20221114
  Receipt Date: 20221116
  Transmission Date: 20230112
  Serious: No
  Sender: FDA-Public Use
  Company Number: US-ABBVIE-4173820

PATIENT
  Age: 56 Year
  Sex: Male

DRUGS (4)
  1. HUMIRA [Suspect]
     Active Substance: ADALIMUMAB
     Indication: Psoriasis
     Dosage: ONCE EVERY 2.5 WEEKS
     Route: 058
  2. HUMIRA [Suspect]
     Active Substance: ADALIMUMAB
     Indication: Rheumatoid arthritis
  3. Pfizer BioNTech COVID-19 vaccine (Tozinameran) [Concomitant]
     Indication: COVID-19 immunisation
     Dosage: ONE IN ONCE FREQUENCY?SECOND DOSE
     Route: 030
     Dates: start: 20210616, end: 20210616
  4. Pfizer BioNTech COVID-19 vaccine (Tozinameran) [Concomitant]
     Indication: COVID-19 immunisation
     Dosage: ONE IN ONCE FREQUENCY?FIRST DOSE
     Route: 030
     Dates: start: 20210520, end: 20210520

REACTIONS (20)
  - Muscular weakness [Not Recovered/Not Resolved]
  - Sinusitis [Recovering/Resolving]
  - Dizziness [Recovering/Resolving]
  - Tremor [Not Recovered/Not Resolved]
  - Fatigue [Recovering/Resolving]
  - Device breakage [Unknown]
  - Inappropriate schedule of product administration [Unknown]
  - Headache [Recovered/Resolved]
  - Respiratory tract congestion [Recovering/Resolving]
  - Upper respiratory tract congestion [Recovering/Resolving]
  - Incorrect dose administered [Unknown]
  - Muscle twitching [Not Recovered/Not Resolved]
  - Balance disorder [Recovering/Resolving]
  - Myalgia [Recovering/Resolving]
  - Head discomfort [Recovering/Resolving]
  - Overdose [Not Recovered/Not Resolved]
  - Sinus headache [Recovering/Resolving]
  - Anxiety [Unknown]
  - Nausea [Recovering/Resolving]
  - Nervousness [Not Recovered/Not Resolved]

NARRATIVE: CASE EVENT DATE: 20221001
